FAERS Safety Report 8102963-X (Version None)
Quarter: 2012Q1

REPORT INFORMATION
  Report Type: 
  Country: None (occurrence: None)
  Receive Date: 20120201
  Receipt Date: 20120127
  Transmission Date: 20120608
  Serious: Yes (Death, Hospitalization, Other)
  Sender: FDA-Public Use
  Company Number: US-ASTELLAS-2011US008190

PATIENT
  Sex: Male

DRUGS (11)
  1. TAMSULOSIN HCL [Concomitant]
     Indication: PRODUCT USED FOR UNKNOWN INDICATION
     Dosage: 0.4 MG, UID/QD
     Route: 048
  2. PROGRAF [Suspect]
     Dosage: 2 MG IN AM, 3 MG IN PM, UID/QD
     Route: 048
     Dates: end: 20111101
  3. ALLOPURINOL [Concomitant]
     Indication: PRODUCT USED FOR UNKNOWN INDICATION
     Dosage: 300 MG, UID/QD
     Route: 048
  4. PROGRAF [Suspect]
     Dosage: 2 MG, UID/QD
     Route: 048
     Dates: end: 20111121
  5. ENALAPRIL MALEATE [Concomitant]
     Indication: PRODUCT USED FOR UNKNOWN INDICATION
     Dosage: 10 MG, UID/QD
     Route: 048
  6. MYCOPHENOLATE MOFETIL (CELLCEPT) [Concomitant]
     Indication: PRODUCT USED FOR UNKNOWN INDICATION
     Dosage: UNK
     Route: 065
  7. PROGRAF [Suspect]
     Indication: RENAL TRANSPLANT
     Dosage: 3 MG, BID
     Route: 048
     Dates: start: 20000117
  8. CARBIDOPA + L-DOPA [Concomitant]
     Indication: PRODUCT USED FOR UNKNOWN INDICATION
     Dosage: 25 MG/100 MG, TID
     Route: 048
  9. POTASSIUM CHLORIDE [Concomitant]
     Indication: PRODUCT USED FOR UNKNOWN INDICATION
     Dosage: 20 MEQ, UID/QD
     Route: 048
  10. VENLAFAXINE [Concomitant]
     Indication: PRODUCT USED FOR UNKNOWN INDICATION
     Dosage: 75 MG, UID/QD
     Route: 048
  11. FAMOTIDINE [Concomitant]
     Indication: PRODUCT USED FOR UNKNOWN INDICATION
     Dosage: 20 MG, UID/QD
     Route: 048

REACTIONS (13)
  - PNEUMONIA [None]
  - MALNUTRITION [None]
  - ARTERIOSCLEROSIS CORONARY ARTERY [None]
  - URINARY TRACT INFECTION [None]
  - DEMENTIA ALZHEIMER'S TYPE [None]
  - TOXIC ENCEPHALOPATHY [None]
  - PARKINSON'S DISEASE [None]
  - AORTIC ANEURYSM [None]
  - BACTERAEMIA [None]
  - STAPHYLOCOCCAL INFECTION [None]
  - COAGULATION TEST ABNORMAL [None]
  - ANAEMIA [None]
  - HYPEROSMOLAR STATE [None]
